FAERS Safety Report 6986122-X (Version None)
Quarter: 2010Q3

REPORT INFORMATION
  Report Type: 
  Country: None (occurrence: None)
  Receive Date: 20100910
  Receipt Date: 20100902
  Transmission Date: 20110219
  Serious: Yes (Hospitalization)
  Sender: FDA-Public Use
  Company Number: 688284

PATIENT
  Age: 75 Year
  Sex: Male

DRUGS (9)
  1. VINCRISTINE SULFATE [Suspect]
     Indication: B-CELL LYMPHOMA
     Dosage: 3 CYCLES  INTRAVENOUS
     Route: 042
     Dates: start: 20100408, end: 20100520
  2. (MABTHERA) [Suspect]
     Indication: B-CELL LYMPHOMA
     Dosage: 3  CYCLES INTRAVENOUS
     Route: 042
     Dates: start: 20100408, end: 20100520
  3. (ENDOXAN  /00021101/) [Suspect]
     Indication: B-CELL LYMPHOMA
     Dosage: 3 CYCLES INTRAVENOUS
     Route: 042
     Dates: start: 20100408, end: 20100520
  4. (CORTANCYL) [Suspect]
     Indication: B-CELL LYMPHOMA
     Dosage: 3 CYCLES PARENTERAL
     Route: 051
     Dates: start: 20100408, end: 20100520
  5. (STILNOX /00914901/) [Concomitant]
  6. (HYPERIUM /00939801/) [Concomitant]
  7. (TOPALIC  /00599202/) [Concomitant]
  8. (MOTILIUM /00498201/) [Concomitant]
  9. ATARAX [Concomitant]

REACTIONS (3)
  - CYTOLYTIC HEPATITIS [None]
  - HEPATITIS ACUTE [None]
  - HEPATITIS B [None]
